APPROVED DRUG PRODUCT: FLUOROURACIL
Active Ingredient: FLUOROURACIL
Strength: 2.5GM/50ML (50MG/ML)
Dosage Form/Route: INJECTABLE;INJECTION
Application: A040334 | Product #001
Applicant: TEVA PHARMACEUTICALS USA
Approved: Feb 25, 2000 | RLD: No | RS: No | Type: DISCN